FAERS Safety Report 21122459 (Version 1)
Quarter: 2022Q3

REPORT INFORMATION
  Report Type: Spontaneous
  Country: US (occurrence: US)
  Receive Date: 20220723
  Receipt Date: 20220723
  Transmission Date: 20221027
  Serious: Yes (Other)
  Sender: FDA-Public Use
  Company Number: US-JNJFOC-20220737191

PATIENT

DRUGS (3)
  1. DARZALEX [Suspect]
     Active Substance: DARATUMUMAB
     Indication: Plasma cell myeloma
     Route: 065
     Dates: start: 20191223
  2. DARZALEX [Suspect]
     Active Substance: DARATUMUMAB
     Route: 065
     Dates: start: 202106
  3. FLUQUADRI [Suspect]
     Active Substance: INFLUENZA VIRUS VACCINE
     Indication: Plasma cell myeloma
     Route: 065
     Dates: start: 202106

REACTIONS (1)
  - Plasma cell myeloma [Unknown]
